FAERS Safety Report 24240582 (Version 1)
Quarter: 2024Q3

REPORT INFORMATION
  Report Type: Spontaneous
  Country: PL (occurrence: PL)
  Receive Date: 20240822
  Receipt Date: 20240822
  Transmission Date: 20241017
  Serious: Yes (Death, Other)
  Sender: AMGEN
  Company Number: PL-ROCHE-3577508

PATIENT
  Age: 60 Year
  Sex: Male
  Weight: 79 kg

DRUGS (5)
  1. BEVACIZUMAB [Suspect]
     Active Substance: BEVACIZUMAB
     Indication: Hepatocellular carcinoma
     Dosage: 15 MILLIGRAM/KILOGRAM 21 DAY
     Route: 040
     Dates: start: 20240119, end: 20240322
  2. TECENTRIQ [Suspect]
     Active Substance: ATEZOLIZUMAB
     Indication: Hepatocellular carcinoma
     Dosage: 1200 MILLIGRAM, 21 DAY
     Route: 040
     Dates: start: 20240119, end: 20240322
  3. ASARIS [Concomitant]
  4. ATORVASTATIN [Concomitant]
     Active Substance: ATORVASTATIN
     Dosage: 20 MILLIGRAM
  5. OMEPRAZOLE [Concomitant]
     Active Substance: OMEPRAZOLE
     Dosage: 40 MILLIGRAM

REACTIONS (6)
  - Oesophageal varices haemorrhage [Fatal]
  - Upper gastrointestinal haemorrhage [Unknown]
  - Coma [Unknown]
  - Abdominal pain upper [Unknown]
  - Aspartate aminotransferase decreased [Unknown]
  - Alanine aminotransferase decreased [Unknown]

NARRATIVE: CASE EVENT DATE: 20240201
